FAERS Safety Report 9549628 (Version 2)
Quarter: 2013Q4

REPORT INFORMATION
  Report Type: Report from Study
  Country: US (occurrence: US)
  Receive Date: 20130924
  Receipt Date: 20131002
  Transmission Date: 20140711
  Serious: Yes (Hospitalization)
  Sender: FDA-Public Use
  Company Number: US-MILLENNIUM PHARMACEUTICALS, INC.-2013MPI000361

PATIENT
  Age: 8 Year
  Sex: Male
  Weight: 28.8 kg

DRUGS (5)
  1. VELCADE [Suspect]
     Indication: ACUTE MYELOID LEUKAEMIA
     Dosage: 1.3 MG/M2, OVER 3-5 SECONDS ON DAYS 1, 4 AND 8
     Route: 040
     Dates: start: 20130703, end: 20130910
  2. CYTARABINE [Suspect]
     Indication: ACUTE MYELOID LEUKAEMIA
     Dosage: UNK
     Route: 037
     Dates: start: 20130703, end: 20130908
  3. CYTARABINE [Suspect]
     Dosage: 1000 MG/M2, BID OVER 1-3 HOURS ON DAYS 1-5
     Route: 042
     Dates: start: 20130703, end: 20130908
  4. ETOPOSIDE [Suspect]
     Indication: ACUTE MYELOID LEUKAEMIA
     Dosage: 150 MG/M2, OVER 60-120 MINUTES ON DAYS 1-5
     Route: 042
     Dates: start: 20130703, end: 20130907
  5. DAUNORUBICIN HYDROCHLORIDE [Suspect]
     Indication: ACUTE MYELOID LEUKAEMIA
     Dosage: 50 MG/M2, OVER 1-15 MINUTES ON DAYS 1, 3 AND 5
     Route: 042
     Dates: start: 20130703, end: 20130810

REACTIONS (1)
  - Infective myositis [Not Recovered/Not Resolved]
